FAERS Safety Report 18749173 (Version 1)
Quarter: 2021Q1

REPORT INFORMATION
  Report Type: Spontaneous
  Country: US (occurrence: US)
  Receive Date: 20210116
  Receipt Date: 20210116
  Transmission Date: 20210419
  Serious: No
  Sender: FDA-Public Use
  Company Number: US-AUROBINDO-AUR-APL-2020-016229

PATIENT

DRUGS (1)
  1. ONDANSETRON ORAL SOLUTION [Suspect]
     Active Substance: ONDANSETRON
     Indication: IRRITABLE BOWEL SYNDROME
     Dosage: UNK
     Route: 065

REACTIONS (2)
  - Foaming at mouth [Unknown]
  - Product formulation issue [Unknown]
